FAERS Safety Report 17794159 (Version 4)
Quarter: 2020Q3

REPORT INFORMATION
  Report Type: Report from Study
  Country: US (occurrence: US)
  Receive Date: 20200515
  Receipt Date: 20200812
  Transmission Date: 20201102
  Serious: No
  Sender: FDA-Public Use
  Company Number: NVSC2020US132981

PATIENT
  Sex: Male

DRUGS (1)
  1. ENTRESTO [Suspect]
     Active Substance: SACUBITRIL\VALSARTAN
     Indication: CARDIAC FAILURE CHRONIC
     Dosage: 97 MG, BID
     Route: 065
     Dates: start: 20200320

REACTIONS (9)
  - Sleep disorder [Unknown]
  - Eating disorder [Unknown]
  - Blood cholesterol abnormal [Unknown]
  - Product dose omission issue [Recovered/Resolved]
  - Vomiting [Unknown]
  - Weight increased [Unknown]
  - Dyspepsia [Recovering/Resolving]
  - Decreased activity [Recovering/Resolving]
  - Therapeutic response unexpected [Recovering/Resolving]
